FAERS Safety Report 20248338 (Version 1)
Quarter: 2021Q4

REPORT INFORMATION
  Report Type: Spontaneous
  Country: US (occurrence: None)
  Receive Date: 20211228
  Receipt Date: 20211228
  Transmission Date: 20220303
  Serious: Yes (Hospitalization)
  Sender: FDA-Public Use
  Company Number: None

PATIENT
  Age: 74 Year
  Sex: Male

DRUGS (1)
  1. METOPROLOL SUCCINATE [Suspect]
     Active Substance: METOPROLOL SUCCINATE
     Dates: start: 20210701

REACTIONS (3)
  - Atrioventricular block second degree [None]
  - Atrioventricular block second degree [None]
  - Therapy cessation [None]

NARRATIVE: CASE EVENT DATE: 20211217
